FAERS Safety Report 6607490-4 (Version None)
Quarter: 2010Q1

REPORT INFORMATION
  Report Type: 
  Country: None (occurrence: None)
  Receive Date: 20100201
  Receipt Date: 20100128
  Transmission Date: 20100710
  Serious: Yes (Disabling)
  Sender: FDA-Public Use
  Company Number: 2010021977

PATIENT
  Age: 39 Year
  Sex: Female

DRUGS (22)
  1. VIVAGLOBIN [Suspect]
     Indication: HYPOGAMMAGLOBULINAEMIA
     Dosage: 90 ML, INFUSION RATE: 20 ML/H; CONCENTRATION OF SOLUTION: 160 MG/ML SUBCUTANEOUS
     Route: 058
     Dates: start: 20091123
  2. VIVAGLOBIN [Suspect]
     Indication: IMMUNODEFICIENCY
     Dosage: 90 ML, INFUSION RATE: 20 ML/H; CONCENTRATION OF SOLUTION: 160 MG/ML SUBCUTANEOUS
     Route: 058
     Dates: start: 20091123
  3. BISOPROLOL FUMARATE [Concomitant]
  4. FLUDROCORTISONE ACETATE [Concomitant]
  5. NASONEX [Concomitant]
  6. LYSOMUCIL (ACETYLCYSTEINE) [Concomitant]
  7. DESORELLE (DESORELLE) [Concomitant]
  8. OMEPRAZOLE [Concomitant]
  9. ESTIVAN (EBASTINE) [Concomitant]
  10. ALPRAZOLAM [Concomitant]
  11. OXAZEPAM [Concomitant]
  12. IMODIUM /00384302/ (LOPERAMIDE HYDROCHLORIDE) [Concomitant]
  13. FLUCONAZOLE [Concomitant]
  14. MEDROL /00049601/ (METHYLPREDNISOLONE) [Concomitant]
  15. MYOLASTAN (TETRAZEPAM) [Concomitant]
  16. DAFALGAN CODEINE (PANADEINE CO) [Concomitant]
  17. BETAHISTINE (BETAHISTINE) [Concomitant]
  18. SUMATRIPTAN SUCCINATE [Concomitant]
  19. SINUTAB /00049001/ (SINUTAB /00049001/) [Concomitant]
  20. ATROVENT [Concomitant]
  21. MAXILASE /00766101/ (AMYLASE) [Concomitant]
  22. MICONAZOLE NITRATE [Concomitant]

REACTIONS (9)
  - ARTHRALGIA [None]
  - BRAIN OEDEMA [None]
  - CHILLS [None]
  - DIZZINESS [None]
  - ERYTHEMA [None]
  - LOCALISED OEDEMA [None]
  - LYMPHADENOPATHY [None]
  - SPEECH DISORDER DEVELOPMENTAL [None]
  - VISUAL IMPAIRMENT [None]
